FAERS Safety Report 10089592 (Version 1)
Quarter: 2014Q2

REPORT INFORMATION
  Report Type: Spontaneous
  Country: US (occurrence: None)
  Receive Date: 20140418
  Receipt Date: 20140418
  Transmission Date: 20141212
  Serious: Yes (Other)
  Sender: FDA-Public Use
  Company Number: None

PATIENT
  Age: 68 Year
  Sex: Female

DRUGS (2)
  1. CIPRO [Suspect]
     Indication: DIVERTICULITIS
     Dosage: 1 TABLET
     Route: 048
  2. METRONIDAZOLE [Suspect]
     Indication: DIVERTICULITIS
     Dosage: 1 TABLET
     Route: 048

REACTIONS (1)
  - Neuropathy peripheral [None]
